FAERS Safety Report 18691550 (Version 1)
Quarter: 2021Q1

REPORT INFORMATION
  Report Type: Spontaneous
  Country: US (occurrence: US)
  Receive Date: 20210101
  Receipt Date: 20210101
  Transmission Date: 20210419
  Serious: Yes (Hospitalization, Other)
  Sender: FDA-Public Use
  Company Number: US-AGIOS-2012US02382

PATIENT
  Age: 31 Year
  Sex: Female

DRUGS (1)
  1. TIBSOVO [Suspect]
     Active Substance: IVOSIDENIB
     Indication: CHOLANGIOCARCINOMA
     Dosage: UNK
     Route: 065

REACTIONS (10)
  - Pseudocirrhosis [Unknown]
  - Abdominal pain [Unknown]
  - Varices oesophageal [Unknown]
  - Hospice care [Unknown]
  - Sepsis [Unknown]
  - Vomiting [Unknown]
  - Condition aggravated [Unknown]
  - Gastric haemorrhage [Unknown]
  - Off label use [Unknown]
  - Haemoglobin decreased [Unknown]
